FAERS Safety Report 4382305-6 (Version None)
Quarter: 2004Q2

REPORT INFORMATION
  Report Type: 
  Country: None (occurrence: None)
  Receive Date: 20040622
  Receipt Date: 20040614
  Transmission Date: 20050107
  Serious: Yes (Hospitalization)
  Sender: FDA-Public Use
  Company Number: FR-BRISTOL-MYERS SQUIBB COMPANY-12613519

PATIENT
  Age: 52 Year
  Sex: Female

DRUGS (2)
  1. KENACORT [Suspect]
     Dosage: ROUTE ALSO REPORTED AS INTRASPINAL.
     Route: 037
  2. CALCIPARINE [Concomitant]
     Dosage: TAKEN FOR ^A LONG TIME.^

REACTIONS (2)
  - ANGIONEUROTIC OEDEMA [None]
  - MALAISE [None]
